FAERS Safety Report 4600269-4 (Version None)
Quarter: 2005Q1

REPORT INFORMATION
  Report Type: 
  Country: None (occurrence: None)
  Receive Date: 20050307
  Receipt Date: 20050302
  Transmission Date: 20050727
  Serious: Yes (Hospitalization)
  Sender: FDA-Public Use
  Company Number: FR-GLAXOSMITHKLINE-B0373483A

PATIENT
  Age: 59 Year
  Sex: Male
  Weight: 110 kg

DRUGS (10)
  1. AUGMENTIN '125' [Suspect]
     Dosage: 1G THREE TIMES PER DAY
     Route: 048
     Dates: start: 20050126, end: 20050131
  2. METHOTREXATE [Suspect]
     Indication: NON-HODGKIN'S LYMPHOMA
     Dosage: 6.6G PER DAY
     Route: 042
     Dates: start: 20050126, end: 20050126
  3. ZOPHREN [Concomitant]
     Route: 065
     Dates: start: 20050126
  4. GLUCOPHAGE [Concomitant]
     Route: 048
     Dates: start: 20041214
  5. OMEPRAZOLE [Concomitant]
     Route: 048
     Dates: start: 20041210
  6. DAFALGAN [Concomitant]
     Route: 048
     Dates: start: 20050126, end: 20050128
  7. SOLUPRED [Concomitant]
     Route: 065
     Dates: start: 20041201
  8. RITUXIMAB [Concomitant]
     Indication: NON-HODGKIN'S LYMPHOMA
     Route: 065
     Dates: start: 20050126, end: 20050126
  9. ARACYTINE [Concomitant]
     Indication: NON-HODGKIN'S LYMPHOMA
     Route: 065
     Dates: start: 20050126, end: 20050130
  10. ACUPAN [Concomitant]
     Route: 048
     Dates: start: 20050126, end: 20050201

REACTIONS (4)
  - CREATININE RENAL CLEARANCE DECREASED [None]
  - DRUG INTERACTION [None]
  - RENAL FAILURE ACUTE [None]
  - THROMBOCYTOPENIA [None]
